FAERS Safety Report 5104242-1 (Version None)
Quarter: 2006Q3

REPORT INFORMATION
  Report Type: 
  Country: None (occurrence: None)
  Receive Date: 20060911
  Receipt Date: 20060825
  Transmission Date: 20061208
  Serious: Yes (Death)
  Sender: FDA-Public Use
  Company Number: 2006-DE-04489GD

PATIENT
  Sex: Male

DRUGS (1)
  1. CODEINE PHOSPHATE AND ACETAMINOPHEN [Suspect]
     Dosage: TM
     Route: 063
     Dates: start: 20050401

REACTIONS (6)
  - DEATH NEONATAL [None]
  - DRUG EXPOSURE VIA BREAST MILK [None]
  - DRUG TOXICITY [None]
  - FEEDING DISORDER NEONATAL [None]
  - LETHARGY [None]
  - SKIN DISCOLOURATION [None]
